FAERS Safety Report 11263518 (Version 3)
Quarter: 2015Q3

REPORT INFORMATION
  Report Type: Spontaneous
  Country: US (occurrence: US)
  Receive Date: 20150713
  Receipt Date: 20150821
  Transmission Date: 20151125
  Serious: Yes (Death, Hospitalization)
  Sender: FDA-Public Use
  Company Number: US-ROCHE-1606981

PATIENT
  Age: 61 Year
  Sex: Female
  Weight: 54.03 kg

DRUGS (6)
  1. LAPATINIB [Concomitant]
     Active Substance: LAPATINIB
     Indication: BREAST CANCER METASTATIC
     Route: 048
     Dates: start: 20150510
  2. PROTONIX (OMEPRAZOLE) [Concomitant]
     Indication: GASTRIC DISORDER
     Route: 048
     Dates: start: 20150515
  3. XELODA [Suspect]
     Active Substance: CAPECITABINE
     Indication: PRODUCT USED FOR UNKNOWN INDICATION
     Dosage: 14 DAYS ON, 7 DAYS OFF
     Route: 065
     Dates: start: 20150510
  4. IMITREX [Concomitant]
     Active Substance: SUMATRIPTAN\SUMATRIPTAN SUCCINATE
     Indication: HEADACHE
     Dosage: PRN
     Route: 048
  5. TYKERB [Suspect]
     Active Substance: LAPATINIB DITOSYLATE
     Indication: BREAST CANCER METASTATIC
     Route: 065
     Dates: start: 20150507
  6. XELODA [Suspect]
     Active Substance: CAPECITABINE
     Route: 065
     Dates: start: 20150628

REACTIONS (3)
  - Diarrhoea haemorrhagic [Unknown]
  - Death [Fatal]
  - Colitis [Unknown]

NARRATIVE: CASE EVENT DATE: 20150526
